FAERS Safety Report 9356990 (Version 1)
Quarter: 2013Q2

REPORT INFORMATION
  Report Type: Report from Study
  Country: NZ (occurrence: NZ)
  Receive Date: 20130620
  Receipt Date: 20130620
  Transmission Date: 20140414
  Serious: Yes (Hospitalization)
  Sender: FDA-Public Use
  Company Number: NZ-ASTRAZENECA-2013SE42555

PATIENT
  Age: 72 Year
  Sex: Male

DRUGS (10)
  1. CASODEX [Suspect]
     Indication: PROSTATE CANCER
     Route: 048
     Dates: start: 20130512
  2. RADIOTHERAPY [Suspect]
     Indication: PROSTATE CANCER
     Route: 065
  3. ZOLADEX [Suspect]
     Indication: PROSTATE CANCER
     Dosage: 10.8 MG 3 MONTHLY TWICE
     Route: 058
     Dates: start: 20130517
  4. DOCETAXEL [Suspect]
     Indication: PROSTATE CANCER
     Route: 042
  5. ASPIRIN [Concomitant]
  6. CILAZAPRIL [Concomitant]
  7. AMLODIPINE [Concomitant]
  8. METOPROLOL [Concomitant]
  9. AMITRIPTYLINE [Concomitant]
  10. SIMVASTATIN [Concomitant]

REACTIONS (2)
  - Diarrhoea [Recovered/Resolved]
  - Dehydration [Recovered/Resolved]
